FAERS Safety Report 14261907 (Version 2)
Quarter: 2017Q4

REPORT INFORMATION
  Report Type: Spontaneous
  Country: FR (occurrence: FR)
  Receive Date: 20171208
  Receipt Date: 20171219
  Transmission Date: 20180321
  Serious: Yes (Life-Threatening, Other)
  Sender: FDA-Public Use
  Company Number: FR-009507513-1712FRA002080

PATIENT
  Age: 67 Year
  Sex: Male
  Weight: 102.7 kg

DRUGS (6)
  1. LASILIX [Suspect]
     Active Substance: FUROSEMIDE
     Dosage: 250 MG, BID
     Route: 042
     Dates: start: 20170329, end: 20170425
  2. CUBICIN [Suspect]
     Active Substance: DAPTOMYCIN
     Indication: ENDOCARDITIS
     Dosage: INCREASED TO 1000 MG, QOD (ODD DAYS)
     Route: 042
     Dates: start: 20170407, end: 20170414
  3. RIFADIN [Suspect]
     Active Substance: RIFAMPIN
     Indication: ENDOCARDITIS
     Dosage: 4 DF, QD
     Route: 048
     Dates: start: 20170407, end: 20170427
  4. CUBICIN [Suspect]
     Active Substance: DAPTOMYCIN
     Dosage: 800 MG, QOD (ODD DAYS)
     Route: 042
     Dates: start: 20170330, end: 20170425
  5. CALCIDOSE [Suspect]
     Active Substance: CALCIUM CARBONATE
     Dosage: 2 DF, QD
     Route: 048
     Dates: start: 20170314, end: 20170425
  6. CUBICIN [Suspect]
     Active Substance: DAPTOMYCIN
     Dosage: CHANGED TO 800 MG, QOD (ODD DAYS)
     Route: 042
     Dates: start: 20170415, end: 20170425

REACTIONS (3)
  - Status epilepticus [Recovering/Resolving]
  - Hallucination [Recovering/Resolving]
  - Overdose [Unknown]

NARRATIVE: CASE EVENT DATE: 20170425
